FAERS Safety Report 16185034 (Version 1)
Quarter: 2019Q2

REPORT INFORMATION
  Report Type: Spontaneous
  Country: FR (occurrence: FR)
  Receive Date: 20190411
  Receipt Date: 20190411
  Transmission Date: 20190711
  Serious: Yes (Hospitalization)
  Sender: FDA-Public Use
  Company Number: FR-MYLANLABS-2019M1033370

PATIENT
  Age: 75 Year
  Sex: Female
  Weight: 66 kg

DRUGS (2)
  1. PACLITAXEL. [Suspect]
     Active Substance: PACLITAXEL
     Indication: OVARIAN CANCER
     Dosage: 126 MILLIGRAM, QW
     Route: 042
     Dates: start: 20180711, end: 20180725
  2. CARBOPLATIN. [Suspect]
     Active Substance: CARBOPLATIN
     Indication: OVARIAN CANCER
     Dosage: 460 MILLIGRAM, 3XW
     Route: 042
     Dates: start: 20180711, end: 20180711

REACTIONS (2)
  - Cardiac failure [Not Recovered/Not Resolved]
  - Atrial fibrillation [Recovering/Resolving]

NARRATIVE: CASE EVENT DATE: 20180725
